FAERS Safety Report 11535762 (Version 1)
Quarter: 2015Q3

REPORT INFORMATION
  Report Type: Spontaneous
  Country: US (occurrence: US)
  Receive Date: 20150922
  Receipt Date: 20150922
  Transmission Date: 20151125
  Serious: No
  Sender: FDA-Public Use
  Company Number: US-IROKO PHARMACEUTICALS LLC-US-I09001-14-00218

PATIENT
  Age: 72 Year
  Sex: Female
  Weight: 71 kg

DRUGS (8)
  1. INDOCIN [Suspect]
     Active Substance: INDOMETHACIN\INDOMETHACIN SODIUM
     Indication: GOUT
     Route: 054
     Dates: start: 20141014
  2. MIRALAX [Concomitant]
     Active Substance: POLYETHYLENE GLYCOL 3350
     Indication: CONSTIPATION
     Route: 065
     Dates: start: 20141012
  3. MEDIACTION FOR NAUSEA AND VOMITING [Concomitant]
     Indication: NAUSEA
     Route: 065
  4. ANTIBIOTIC [Concomitant]
     Active Substance: UNSPECIFIED INGREDIENT
     Indication: PRODUCT USED FOR UNKNOWN INDICATION
     Route: 065
  5. MEDIACTION FOR PROPHYLAXIS FOR DVT [Concomitant]
     Indication: THROMBOSIS PROPHYLAXIS
     Route: 065
  6. PROTON PUMP INHIBITOR [Concomitant]
     Active Substance: UNSPECIFIED INGREDIENT
     Indication: PRODUCT USED FOR UNKNOWN INDICATION
     Route: 065
  7. INDOMETHACIN. [Concomitant]
     Active Substance: INDOMETHACIN
     Indication: GOUT
     Route: 048
  8. MEDIACTION FOR NAUSEA AND VOMITING [Concomitant]
     Indication: VOMITING

REACTIONS (1)
  - Anorectal discomfort [Unknown]

NARRATIVE: CASE EVENT DATE: 20141014
